FAERS Safety Report 5750455-5 (Version None)
Quarter: 2008Q2

REPORT INFORMATION
  Report Type: 
  Country: None (occurrence: None)
  Receive Date: 20080528
  Receipt Date: 20070809
  Transmission Date: 20081010
  Serious: No
  Sender: FDA-Public Use
  Company Number: US-KINGPHARMUSA00001-K200701017

PATIENT

DRUGS (3)
  1. AVINZA [Suspect]
     Indication: SPINAL OSTEOARTHRITIS
     Dosage: 60 MG, QD
     Route: 048
     Dates: start: 20070807, end: 20070807
  2. AVINZA [Suspect]
  3. AVINZA [Suspect]
     Indication: OSTEOARTHRITIS

REACTIONS (4)
  - ENURESIS [None]
  - INFLUENZA LIKE ILLNESS [None]
  - MALAISE [None]
  - PYREXIA [None]
